FAERS Safety Report 6790886-8 (Version None)
Quarter: 2010Q2

REPORT INFORMATION
  Report Type: 
  Country: None (occurrence: None)
  Receive Date: 20100624
  Receipt Date: 20100616
  Transmission Date: 20101027
  Serious: Yes (Death)
  Sender: FDA-Public Use
  Company Number: B0652783A

PATIENT
  Age: 67 Year
  Sex: Female

DRUGS (2)
  1. TYKERB [Suspect]
     Indication: DRUG USE FOR UNKNOWN INDICATION
     Route: 048
  2. XELODA [Concomitant]
     Route: 048

REACTIONS (3)
  - DIARRHOEA [None]
  - HEPATIC FUNCTION ABNORMAL [None]
  - MALAISE [None]
